FAERS Safety Report 10405117 (Version 1)
Quarter: 2014Q3

REPORT INFORMATION
  Report Type: Spontaneous
  Country: US (occurrence: None)
  Receive Date: 20140820
  Receipt Date: 20140820
  Transmission Date: 20150326
  Serious: No
  Sender: FDA-Public Use
  Company Number: 2014CT000115

PATIENT
  Age: 53 Year
  Sex: Female
  Weight: 83.92 kg

DRUGS (1)
  1. KORLYM [Suspect]
     Active Substance: MIFEPRISTONE
     Indication: PITUITARY-DEPENDENT CUSHING^S SYNDROME
     Route: 048
     Dates: start: 2009

REACTIONS (3)
  - Endometrial hypertrophy [None]
  - Vaginal haemorrhage [None]
  - Abdominal pain [None]

NARRATIVE: CASE EVENT DATE: 201205
